FAERS Safety Report 5902552-9 (Version None)
Quarter: 2008Q3

REPORT INFORMATION
  Report Type: 
  Country: None (occurrence: None)
  Receive Date: 20080929
  Receipt Date: 20080918
  Transmission Date: 20090109
  Serious: Yes (Hospitalization)
  Sender: FDA-Public Use
  Company Number: DE-GENENTECH-268592

PATIENT
  Sex: Male

DRUGS (2)
  1. RITUXIMAB [Suspect]
     Indication: B-CELL LYMPHOMA
     Dosage: 375 MG/M2, UNK
     Route: 042
     Dates: start: 20080623
  2. BENDAMUSTINE [Suspect]
     Indication: B-CELL LYMPHOMA
     Dosage: 90 MG/M2, UNK
     Route: 042
     Dates: start: 20080624

REACTIONS (1)
  - FEBRILE NEUTROPENIA [None]
